FAERS Safety Report 13049184 (Version 1)
Quarter: 2016Q4

REPORT INFORMATION
  Report Type: Spontaneous
  Country: FR (occurrence: FR)
  Receive Date: 20161221
  Receipt Date: 20161221
  Transmission Date: 20170207
  Serious: Yes (Hospitalization)
  Sender: FDA-Public Use
  Company Number: FR-PFIZER INC-2016586530

PATIENT
  Age: 71 Year
  Sex: Female

DRUGS (10)
  1. IMETH [Suspect]
     Active Substance: METHOTREXATE SODIUM
     Indication: PSORIASIS
     Dosage: 5 MG (0.7143 MG), WEEKLY (1 IN 1 W)
     Route: 048
     Dates: start: 20151223
  2. IMETH [Suspect]
     Active Substance: METHOTREXATE SODIUM
     Dosage: 10 MG (1.4286 MG), WEEKLY (1 IN 1 W)
     Route: 048
     Dates: start: 20160106, end: 20160127
  3. IMETH [Suspect]
     Active Substance: METHOTREXATE SODIUM
     Dosage: 7.5 MG (1.0714 MG), WEEKLY (1 IN 1 W)
     Route: 048
     Dates: start: 20151230
  4. ZOLPIDEM [Concomitant]
     Active Substance: ZOLPIDEM\ZOLPIDEM TARTRATE
     Dosage: 10 MG, 1X/DAY
     Route: 048
  5. SPECIAFOLDINE [Concomitant]
     Active Substance: FOLIC ACID
     Dosage: 5 MG (3 TIMES A WEEK)
     Route: 048
  6. ALPRAZOLAM. [Concomitant]
     Active Substance: ALPRAZOLAM
     Dosage: 0.5 MG, 2X/DAY
     Route: 048
  7. IMETH [Suspect]
     Active Substance: METHOTREXATE SODIUM
     Dosage: 12.5 MG  (1.7857 MG), WEEKLY (CUMULATIVE DOSE OF 90 MG METHOTREXATE)
     Route: 048
     Dates: start: 20160203, end: 20160222
  8. LERCAN [Concomitant]
     Active Substance: LERCANIDIPINE
     Dosage: 10 MG, 1X/DAY
     Route: 048
  9. LIPANTHYL [Concomitant]
     Active Substance: FENOFIBRATE
     Dosage: 160 MG, 1X/DAY
     Route: 048
  10. INEXIUM [Concomitant]
     Active Substance: ESOMEPRAZOLE
     Dosage: UNK, AS NEEDED
     Route: 048

REACTIONS (3)
  - Lung disorder [Recovering/Resolving]
  - Therapeutic response decreased [Unknown]
  - Alveolitis allergic [Recovering/Resolving]

NARRATIVE: CASE EVENT DATE: 201602
